FAERS Safety Report 7712038-7 (Version None)
Quarter: 2011Q3

REPORT INFORMATION
  Report Type: 
  Country: None (occurrence: None)
  Receive Date: 20110826
  Receipt Date: 20110823
  Transmission Date: 20111222
  Serious: Yes (Hospitalization)
  Sender: FDA-Public Use
  Company Number: ES-PFIZER INC-2011196014

PATIENT
  Age: 78 Year
  Sex: Male

DRUGS (6)
  1. TENORMIN [Suspect]
     Indication: ATRIAL FIBRILLATION
     Dosage: 50 MG, 2X/DAY
     Route: 048
     Dates: start: 20060101, end: 20110314
  2. PROZAC [Suspect]
     Indication: DEPRESSION
     Dosage: 20 MG, 1X/DAY
     Route: 048
     Dates: start: 20060101, end: 20110315
  3. RISPERDAL [Suspect]
     Indication: AGITATION
     Dosage: 1 MG, 1X/DAY
     Route: 048
     Dates: start: 20060101, end: 20110313
  4. LORAZEPAM [Suspect]
     Indication: INSOMNIA
     Dosage: 1 MG, 1X/DAY
     Route: 048
     Dates: start: 20110201, end: 20110313
  5. HALOPERIDOL [Concomitant]
     Indication: AGITATION
     Dosage: 12 GTT, DAILY
     Route: 048
     Dates: start: 20100801
  6. NORVASC [Suspect]
     Indication: HYPERTENSION
     Dosage: 5 MG, 1X/DAY
     Route: 048
     Dates: start: 20060101, end: 20110313

REACTIONS (1)
  - HEPATIC FAILURE [None]
